FAERS Safety Report 17952662 (Version 1)
Quarter: 2020Q2

REPORT INFORMATION
  Report Type: Spontaneous
  Country: GB (occurrence: GB)
  Receive Date: 20200626
  Receipt Date: 20200626
  Transmission Date: 20200714
  Serious: Yes (Other)
  Sender: FDA-Public Use
  Company Number: GB-NEUROCRINE BIOSCIENCES INC.-2020NBI02105

PATIENT
  Age: 73 Year
  Sex: Male
  Weight: 78 kg

DRUGS (13)
  1. WARFARIN SODIUM. [Concomitant]
     Active Substance: WARFARIN SODIUM
     Dosage: TAKE ACCORDING TO INR RESULT AS DIRECTED
     Dates: start: 20191009
  2. PARACETAMOL [Concomitant]
     Active Substance: ACETAMINOPHEN
     Dosage: TAKE 1 OR 2 - 4 TIMES A DAY
     Dates: start: 20191009
  3. STALEVO [Concomitant]
     Active Substance: CARBIDOPA\ENTACAPONE\LEVODOPA
     Dosage: (AT 8 PM)
     Dates: start: 20191009, end: 20200416
  4. OPICAPONE [Suspect]
     Active Substance: OPICAPONE
     Indication: PRODUCT USED FOR UNKNOWN INDICATION
     Dosage: (AT NIGHT, AT LEAST ONE HOUR...)
     Route: 048
     Dates: start: 20200416, end: 20200512
  5. CO-CARELDOPA [Concomitant]
     Active Substance: CARBIDOPA\LEVODOPA
     Dosage: 4 DOSAGE FORM, 1X / DAY (AT 8 AM, 11 AM, 2 PM AND 5 PM)
     Dates: start: 20200416, end: 20200513
  6. SERTRALINE [Concomitant]
     Active Substance: SERTRALINE HYDROCHLORIDE
     Dates: start: 20191009
  7. AMITRIPTYLINE HYDROCHLORIDE. [Concomitant]
     Active Substance: AMITRIPTYLINE HYDROCHLORIDE
     Dosage: (AT NIGHT)
     Dates: start: 20191009
  8. OMEPRAZOLE. [Concomitant]
     Active Substance: OMEPRAZOLE
     Dosage: INSTEAD OF RANITIDINE
     Dates: start: 20191009
  9. LACTULOSE. [Concomitant]
     Active Substance: LACTULOSE
     Dates: start: 20200521
  10. STANEK [Concomitant]
     Dates: start: 20200513
  11. SINEMET [Concomitant]
     Active Substance: CARBIDOPA\LEVODOPA
     Dosage: AT NIGHT- 21:00
     Dates: start: 20191009
  12. ZEROBASE [PARAFFIN, LIQUID] [Concomitant]
     Indication: DRY SKIN
     Dosage: AS NEEDED
     Dates: start: 20200310, end: 20200407
  13. HYDROCORTISONE. [Concomitant]
     Active Substance: HYDROCORTISONE
     Dates: start: 20191009

REACTIONS (3)
  - Malaise [Unknown]
  - Therapy cessation [Unknown]
  - Visual impairment [Recovered/Resolved]

NARRATIVE: CASE EVENT DATE: 20200418
